FAERS Safety Report 4646365-7 (Version None)
Quarter: 2005Q2

REPORT INFORMATION
  Report Type: 
  Country: None (occurrence: None)
  Receive Date: 20050422
  Receipt Date: 20050408
  Transmission Date: 20051028
  Serious: No
  Sender: FDA-Public Use
  Company Number: CART-10389

PATIENT
  Age: 19 Year
  Sex: Male
  Weight: 77.1115 kg

DRUGS (1)
  1. CARTICEL [Suspect]
     Indication: ARTHROPATHY
     Dosage: 1 NA ONCE IS
     Route: 035
     Dates: start: 20041230, end: 20041230

REACTIONS (14)
  - ARTHRITIS BACTERIAL [None]
  - C-REACTIVE PROTEIN INCREASED [None]
  - EFFUSION [None]
  - ERYTHEMA [None]
  - INCISION SITE COMPLICATION [None]
  - INFLAMMATION [None]
  - INFLUENZA LIKE ILLNESS [None]
  - POST PROCEDURAL COMPLICATION [None]
  - POST PROCEDURAL PAIN [None]
  - PURULENT DISCHARGE [None]
  - RED BLOOD CELL SEDIMENTATION RATE INCREASED [None]
  - SCAR [None]
  - SUTURE LINE INFECTION [None]
  - SWELLING [None]
